FAERS Safety Report 9315840 (Version 4)
Quarter: 2013Q3

REPORT INFORMATION
  Report Type: Spontaneous
  Country: JP (occurrence: JP)
  Receive Date: 20130529
  Receipt Date: 20130731
  Transmission Date: 20140515
  Serious: Yes (Hospitalization, Disabling, Other)
  Sender: FDA-Public Use
  Company Number: JP-BRISTOL-MYERS SQUIBB COMPANY-18921395

PATIENT
  Age: 75 Year
  Sex: Male
  Weight: 45 kg

DRUGS (13)
  1. ELIQUIS [Suspect]
     Indication: CEREBRAL INFARCTION
     Dosage: ADMINISTRED CRUSHED 2.5 MG TABS X2DAY VIA TUBE.?25APR2013-29APR2013:ORALLY?30APR2013-07-MAY:TUBE
     Route: 048
     Dates: start: 20130425, end: 20130507
  2. LANSOPRAZOLE [Suspect]
     Indication: PROPHYLAXIS
     Dosage: ODT 15MG
     Route: 050
     Dates: start: 20130425, end: 20130507
  3. FOLIAMIN [Concomitant]
     Route: 050
     Dates: start: 20130507
  4. ZOSYN [Concomitant]
     Route: 042
     Dates: start: 20130430, end: 20130504
  5. CORINAEL L [Concomitant]
     Dosage: TABS
     Route: 048
  6. SIPSERON [Concomitant]
     Dosage: TABS
     Route: 048
  7. DISOPYRAMIDE PHOSPHATE [Concomitant]
     Route: 048
  8. FAMOTIDINE [Concomitant]
  9. MECOBALAMIN [Concomitant]
  10. MILMAG [Concomitant]
     Dosage: TABS
     Route: 048
  11. DUTASTERIDE [Concomitant]
     Dosage: AVOLVE CAPS
     Route: 048
  12. HARNAL [Concomitant]
     Dosage: TABS
     Route: 048
  13. BAKTAR [Concomitant]
     Route: 048

REACTIONS (4)
  - Cerebral haemorrhage [Recovered/Resolved with Sequelae]
  - Pneumonia aspiration [Recovering/Resolving]
  - Liver disorder [Recovered/Resolved]
  - Wrong technique in drug usage process [Unknown]
